FAERS Safety Report 10886480 (Version 3)
Quarter: 2015Q2

REPORT INFORMATION
  Report Type: Report from Study
  Country: CA (occurrence: CA)
  Receive Date: 20150304
  Receipt Date: 20150514
  Transmission Date: 20150821
  Serious: Yes (Death, Hospitalization, Other)
  Sender: FDA-Public Use
  Company Number: PHHY2015CA025212

PATIENT
  Age: 66 Year
  Sex: Female

DRUGS (2)
  1. SANDOSTATIN LAR DEPOT [Suspect]
     Active Substance: OCTREOTIDE ACETATE
     Indication: OVARIAN CANCER
     Dosage: 30 MG, QMO
     Route: 030
     Dates: start: 20141231
  2. SANDOSTATIN LAR DEPOT [Suspect]
     Active Substance: OCTREOTIDE ACETATE
     Indication: INTESTINAL OBSTRUCTION

REACTIONS (17)
  - Malignant neoplasm progression [Unknown]
  - General physical health deterioration [Unknown]
  - Vomiting [Recovering/Resolving]
  - Nausea [Unknown]
  - Off label use [Unknown]
  - Ascites [Recovering/Resolving]
  - Abdominal pain upper [Recovering/Resolving]
  - Dyspnoea [Recovering/Resolving]
  - Abdominal pain [Unknown]
  - Blood calcium decreased [Unknown]
  - Back pain [Unknown]
  - Death [Fatal]
  - Intestinal obstruction [Recovering/Resolving]
  - Haemoglobin decreased [Unknown]
  - Fall [Unknown]
  - Wrist fracture [Unknown]
  - Blood magnesium decreased [Unknown]

NARRATIVE: CASE EVENT DATE: 201502
